FAERS Safety Report 9805984 (Version 2)
Quarter: 2014Q1

REPORT INFORMATION
  Report Type: Spontaneous
  Country: US (occurrence: US)
  Receive Date: 20140109
  Receipt Date: 20140127
  Transmission Date: 20141002
  Serious: Yes (Other)
  Sender: FDA-Public Use
  Company Number: US-MYLANLABS-2014S1000004

PATIENT
  Sex: Female

DRUGS (7)
  1. JANUMET [Concomitant]
  2. LEVOTHYROXINE SODIUM TABLETS, USP [Suspect]
     Indication: HYPOTHYROIDISM
     Dates: start: 2010, end: 2013
  3. LEVOTHYROXINE SODIUM TABLETS, USP [Suspect]
     Indication: THYROID CANCER
     Dates: start: 2010, end: 2013
  4. LIPITOR [Concomitant]
  5. IRBESARTAN [Concomitant]
  6. PEPCID [Concomitant]
  7. XANAX [Concomitant]

REACTIONS (4)
  - Thyroid cancer recurrent [Not Recovered/Not Resolved]
  - Blood thyroid stimulating hormone increased [Recovered/Resolved]
  - Thyroglobulin increased [Recovered/Resolved]
  - Depression [Not Recovered/Not Resolved]
